FAERS Safety Report 4304355-8 (Version None)
Quarter: 2004Q1

REPORT INFORMATION
  Report Type: 
  Country: None (occurrence: None)
  Receive Date: 20040224
  Receipt Date: 20040212
  Transmission Date: 20041129
  Serious: Yes (Life-Threatening, Hospitalization, Other)
  Sender: FDA-Public Use
  Company Number: US043257

PATIENT
  Age: 14 Year
  Sex: Male

DRUGS (1)
  1. ETANERCEPT [Suspect]
     Indication: JUVENILE ARTHRITIS
     Dosage: 0.4 MG, 2 IN 1 WEEKS, SC
     Route: 058
     Dates: start: 19990101, end: 20000101

REACTIONS (1)
  - HISTIOCYTOSIS HAEMATOPHAGIC [None]
